FAERS Safety Report 4986948-8 (Version None)
Quarter: 2006Q2

REPORT INFORMATION
  Report Type: 
  Country: None (occurrence: None)
  Receive Date: 20060427
  Receipt Date: 20060427
  Transmission Date: 20061013
  Serious: Yes (Hospitalization)
  Sender: FDA-Public Use
  Company Number: None

PATIENT
  Age: 21 Year
  Sex: Female
  Weight: 82 kg

DRUGS (1)
  1. ACETADOTE [Suspect]
     Indication: OVERDOSE
     Dosage: 8000 MG X 1 OVER 16 HRS IV; 12000 MG X 1 OVER 15 MIN IV
     Route: 042
     Dates: start: 20060419, end: 20060420

REACTIONS (1)
  - RASH ERYTHEMATOUS [None]
